FAERS Safety Report 7964649-1 (Version None)
Quarter: 2011Q4

REPORT INFORMATION
  Report Type: 
  Country: None (occurrence: None)
  Receive Date: 20111208
  Receipt Date: 20111201
  Transmission Date: 20120403
  Serious: Yes (Other)
  Sender: FDA-Public Use
  Company Number: BR-NOVOPROD-340757

PATIENT

DRUGS (2)
  1. NOVOLOG [Concomitant]
  2. VICTOZA [Suspect]
     Indication: TYPE 2 DIABETES MELLITUS
     Dosage: UNKNOWN
     Route: 065
     Dates: start: 20110801

REACTIONS (3)
  - BLOOD AMYLASE INCREASED [None]
  - ABDOMINAL PAIN [None]
  - VOMITING [None]
